FAERS Safety Report 12690077 (Version 2)
Quarter: 2017Q1

REPORT INFORMATION
  Report Type: Spontaneous
  Country: US (occurrence: US)
  Receive Date: 20160826
  Receipt Date: 20170120
  Transmission Date: 20170428
  Serious: Yes (Death, Hospitalization)
  Sender: FDA-Public Use
  Company Number: US-ASTELLAS-2016US008976

PATIENT
  Sex: Male

DRUGS (2)
  1. XTANDI [Suspect]
     Active Substance: ENZALUTAMIDE
     Indication: PROSTATE CANCER
     Route: 048
     Dates: start: 20160216
  2. XTANDI [Suspect]
     Active Substance: ENZALUTAMIDE
     Dosage: 40 MG (1 CAPSULE), ONCE DAILY
     Route: 048

REACTIONS (6)
  - Death [Fatal]
  - Fatigue [Unknown]
  - Underdose [Unknown]
  - Neuropathy peripheral [Unknown]
  - Confusional state [Unknown]
  - Pneumonia [Unknown]
